FAERS Safety Report 16525934 (Version 1)
Quarter: 2019Q3

REPORT INFORMATION
  Report Type: Spontaneous
  Country: US (occurrence: US)
  Receive Date: 20190703
  Receipt Date: 20190703
  Transmission Date: 20191004
  Serious: Yes (Other)
  Sender: FDA-Public Use
  Company Number: US-ROCHE-2346881

PATIENT
  Age: 77 Year
  Sex: Female

DRUGS (2)
  1. KLONOPIN [Suspect]
     Active Substance: CLONAZEPAM
     Dosage: 0.25 MG DAY AND 0.25 MG NIGHT
     Route: 048
  2. KLONOPIN [Suspect]
     Active Substance: CLONAZEPAM
     Indication: ANXIETY
     Dosage: 1/2 OF 0.5 MG TABLET TWICE DAILY
     Route: 048

REACTIONS (2)
  - Dizziness [Unknown]
  - Parkinsonism [Unknown]
